FAERS Safety Report 7335895 (Version 2)
Quarter: 2014Q1

REPORT INFORMATION
  Report Type: Spontaneous
  Country: US (occurrence: US)
  Receive Date: 20100330
  Receipt Date: 20140123
  Transmission Date: 20141002
  Serious: Yes (Other)
  Sender: FDA-Public Use
  Company Number: US-JNJFOC-20100306779

PATIENT
  Age: 32 Year
  Sex: Male
  Weight: 104.33 kg

DRUGS (5)
  1. SANDOZ FENTANYL TRANSDERMAL SYSTEM [Suspect]
     Indication: NERVE INJURY
     Route: 062
     Dates: start: 2009, end: 20100318
  2. SANDOZ FENTANYL TRANSDERMAL SYSTEM [Suspect]
     Indication: NERVE INJURY
     Route: 062
     Dates: start: 20100318
  3. HYDROMORPHONE [Concomitant]
     Indication: BREAKTHROUGH PAIN
     Route: 048
     Dates: start: 2005
  4. LYRICA [Concomitant]
     Indication: NEURALGIA
     Route: 048
  5. XANAX [Concomitant]
     Indication: VOMITING
     Route: 048
     Dates: start: 2006

REACTIONS (7)
  - Head and neck cancer [Unknown]
  - Drug administered at inappropriate site [Unknown]
  - Wrong technique in drug usage process [Unknown]
  - Application site pruritus [Recovered/Resolved]
  - Drug ineffective [Not Recovered/Not Resolved]
  - Malaise [Not Recovered/Not Resolved]
  - Product adhesion issue [Unknown]
